FAERS Safety Report 17424681 (Version 2)
Quarter: 2020Q1

REPORT INFORMATION
  Report Type: Spontaneous
  Country: US (occurrence: US)
  Receive Date: 20200217
  Receipt Date: 20200312
  Transmission Date: 20200409
  Serious: Yes (Death, Other)
  Sender: FDA-Public Use
  Company Number: US-GLAXOSMITHKLINE-US2020025191

PATIENT
  Age: 63 Year
  Sex: Female
  Weight: 67 kg

DRUGS (1)
  1. NUCALA [Suspect]
     Active Substance: MEPOLIZUMAB
     Indication: ASTHMA
     Dosage: UNK
     Route: 058
     Dates: start: 20170927

REACTIONS (4)
  - Cerebrovascular accident [Unknown]
  - Drug ineffective [Unknown]
  - Transient ischaemic attack [Unknown]
  - B-cell lymphoma [Fatal]

NARRATIVE: CASE EVENT DATE: 2019
